FAERS Safety Report 5660390-9 (Version None)
Quarter: 2008Q1

REPORT INFORMATION
  Report Type: 
  Country: None (occurrence: None)
  Receive Date: 20080311
  Receipt Date: 20071010
  Transmission Date: 20080703
  Serious: No
  Sender: FDA-Public Use
  Company Number: US-BAYER-200713326BCC

PATIENT
  Age: 26 Year
  Sex: Female
  Weight: 70 kg

DRUGS (3)
  1. ALEVE (CAPLET) [Suspect]
     Indication: PHARYNGITIS STREPTOCOCCAL
     Dosage: UNIT DOSE: 220 MG
     Route: 048
     Dates: start: 20071009
  2. LEVOTHYROXINE SODIUM [Concomitant]
  3. CEPHALEXIN [Concomitant]

REACTIONS (1)
  - NO ADVERSE EVENT [None]
